FAERS Safety Report 20912285 (Version 1)
Quarter: 2022Q2

REPORT INFORMATION
  Report Type: Spontaneous
  Country: DE (occurrence: DE)
  Receive Date: 20220603
  Receipt Date: 20220603
  Transmission Date: 20220720
  Serious: Yes (Hospitalization)
  Sender: FDA-Public Use
  Company Number: DE-Gedeon Richter Plc.-2021_GR_005010

PATIENT
  Sex: Male
  Weight: 81.9 kg

DRUGS (11)
  1. CARIPRAZINE HYDROCHLORIDE [Interacting]
     Active Substance: CARIPRAZINE HYDROCHLORIDE
     Indication: Schizophrenia
     Dosage: 1.5 MG, QD
     Route: 048
     Dates: start: 20210523
  2. CARIPRAZINE HYDROCHLORIDE [Interacting]
     Active Substance: CARIPRAZINE HYDROCHLORIDE
     Dosage: 3 MG, QD
     Route: 048
     Dates: end: 20210529
  3. CARIPRAZINE HYDROCHLORIDE [Interacting]
     Active Substance: CARIPRAZINE HYDROCHLORIDE
     Dosage: 1.5 MG DAILY
     Route: 048
  4. CLOZAPINE [Interacting]
     Active Substance: CLOZAPINE
     Indication: Schizophrenia
     Dosage: CURRENTLY 850 MG ONCE DAILY
     Route: 048
  5. PIPAMPERONE [Concomitant]
     Active Substance: PIPAMPERONE
     Indication: Schizophrenia
     Dosage: 140 MG, QD
  6. AMISULPRIDE [Concomitant]
     Active Substance: AMISULPRIDE
     Indication: Schizophrenia
     Dosage: 200 MG, QD
  7. MIRTAZAPINE [Concomitant]
     Active Substance: MIRTAZAPINE
     Indication: Schizophrenia
     Dosage: 30 MG, QD
  8. MIRTAZAPINE [Concomitant]
     Active Substance: MIRTAZAPINE
     Dosage: 45 MG, QD
  9. PIRENZEPINE [Concomitant]
     Active Substance: PIRENZEPINE
     Indication: Schizophrenia
     Dosage: 100 MG, QD
  10. VALPROATE SODIUM [Concomitant]
     Active Substance: VALPROATE SODIUM
     Indication: Schizophrenia
     Dosage: 2000 MG, QD
  11. VALPROATE SODIUM [Concomitant]
     Active Substance: VALPROATE SODIUM
     Dosage: 2300 MG, QD

REACTIONS (5)
  - Antipsychotic drug level increased [Recovered/Resolved]
  - Schizophrenia [Recovered/Resolved]
  - Extrapyramidal disorder [Recovered/Resolved]
  - Pleurothotonus [Recovered/Resolved]
  - Drug interaction [Recovered/Resolved]

NARRATIVE: CASE EVENT DATE: 20210528
